FAERS Safety Report 9714271 (Version 2)
Quarter: 2013Q4

REPORT INFORMATION
  Report Type: Spontaneous
  Country: US (occurrence: US)
  Receive Date: 20131126
  Receipt Date: 20131126
  Transmission Date: 20140711
  Serious: No
  Sender: FDA-Public Use
  Company Number: US-GILEAD-2008-0019003

PATIENT
  Sex: Female
  Weight: 63.05 kg

DRUGS (7)
  1. LETAIRIS [Suspect]
     Indication: PULMONARY ARTERIAL HYPERTENSION
     Route: 048
     Dates: start: 20071130
  2. LOVAZA [Concomitant]
  3. SUPER OMEGA 3 [Concomitant]
  4. ZYRTEC [Concomitant]
  5. CALCIUM [Concomitant]
  6. COQ10 [Concomitant]
  7. MULTIVITAMIN [Concomitant]

REACTIONS (1)
  - Hypoaesthesia [Unknown]
